FAERS Safety Report 9242801 (Version 2)
Quarter: 2013Q2

REPORT INFORMATION
  Report Type: Spontaneous
  Country: US (occurrence: US)
  Receive Date: 20130419
  Receipt Date: 20130502
  Transmission Date: 20140414
  Serious: No
  Sender: FDA-Public Use
  Company Number: US-PFIZER INC-2013122415

PATIENT
  Age: 31 Year
  Sex: Male
  Weight: 49 kg

DRUGS (2)
  1. GEMCITABINE HYDROCHLORIDE [Suspect]
     Dosage: UNK
  2. CARBOPLATIN [Suspect]
     Dosage: UNK

REACTIONS (2)
  - Disease progression [Unknown]
  - Neoplasm malignant [Unknown]
